FAERS Safety Report 12428399 (Version 1)
Quarter: 2016Q2

REPORT INFORMATION
  Report Type: Spontaneous
  Country: US (occurrence: None)
  Receive Date: 20160601
  Receipt Date: 20160601
  Transmission Date: 20160815
  Serious: Yes (Life-Threatening)
  Sender: FDA-Public Use
  Company Number: None

PATIENT
  Age: 7 Year
  Sex: Male
  Weight: 20.41 kg

DRUGS (6)
  1. EPIPEN JR [Concomitant]
     Active Substance: EPINEPHRINE
  2. ALBUTEROL WITH CHAMBER [Concomitant]
  3. EPIPEN JR [Suspect]
     Active Substance: EPINEPHRINE
     Indication: FOOD ALLERGY
     Dosage: ?1 INJECTION (S) AS NEEDED?INTO THE MUSCLE
     Route: 030
     Dates: start: 20110131
  4. EPIPEN JR [Suspect]
     Active Substance: EPINEPHRINE
     Indication: ANAPHYLACTIC REACTION
     Dosage: ?1 INJECTION (S) AS NEEDED?INTO THE MUSCLE
     Route: 030
     Dates: start: 20110131
  5. PROBIOTICS [Concomitant]
     Active Substance: PROBIOTICS NOS
  6. VITAMINS [Concomitant]
     Active Substance: VITAMINS

REACTIONS (6)
  - Medical device site injury [None]
  - Laceration [None]
  - Scratch [None]
  - Device malfunction [None]
  - Needle issue [None]
  - Medical device site haemorrhage [None]

NARRATIVE: CASE EVENT DATE: 20160529
